FAERS Safety Report 22643380 (Version 1)
Quarter: 2023Q2

REPORT INFORMATION
  Report Type: Spontaneous
  Country: ES (occurrence: ES)
  Receive Date: 20230627
  Receipt Date: 20230627
  Transmission Date: 20230722
  Serious: Yes (Other)
  Sender: FDA-Public Use
  Company Number: None

PATIENT
  Age: 44 Year
  Sex: Male

DRUGS (9)
  1. SECUKINUMAB [Suspect]
     Active Substance: SECUKINUMAB
     Indication: Ankylosing spondylitis
     Dosage: 1 DOSAGE FORM, QMO
     Route: 048
     Dates: start: 20181009
  2. METAMIZOL [Concomitant]
     Active Substance: METAMIZOLE SODIUM
     Indication: Ankylosing spondylitis
     Dosage: 1 DOSAGE FORM, Q12H
     Route: 048
     Dates: start: 20130820
  3. FENTANYL [Concomitant]
     Active Substance: FENTANYL
     Indication: Ankylosing spondylitis
     Dosage: 1 DOSAGE FORM, Q72H
     Route: 003
     Dates: start: 20180326
  4. CALCIFEDIOL [Concomitant]
     Active Substance: CALCIFEDIOL
     Indication: Vitamin D deficiency
     Dosage: 1 DOSAGE FORM, QMO
     Route: 048
     Dates: start: 20171213
  5. ALLOPURINOL [Concomitant]
     Active Substance: ALLOPURINOL
     Indication: Product used for unknown indication
     Dosage: 1 DOSAGE FORM, QD
     Route: 048
     Dates: start: 20160116
  6. POTASIO [Concomitant]
     Indication: Nephrolithiasis
     Dosage: 1 DOSAGE FORM, Q8H
     Route: 048
     Dates: start: 20110913
  7. LISINOPRIL [Concomitant]
     Active Substance: LISINOPRIL
     Indication: Essential hypertension
     Dosage: 1 DOSAGE FORM, QD
     Route: 048
     Dates: start: 20160520
  8. GEMFIBROZIL [Concomitant]
     Active Substance: GEMFIBROZIL
     Indication: Hypertriglyceridaemia
     Dosage: 1 DOSAGE FORM, QD
     Route: 048
     Dates: start: 20160906
  9. ACETAMINOPHEN [Concomitant]
     Active Substance: ACETAMINOPHEN
     Indication: Ankylosing spondylitis
     Dosage: 1 DOSAGE FORM, Q12H
     Route: 048
     Dates: start: 20170201

REACTIONS (1)
  - Respiratory tract infection [Recovering/Resolving]

NARRATIVE: CASE EVENT DATE: 20181111
